FAERS Safety Report 25509244 (Version 1)
Quarter: 2025Q3

REPORT INFORMATION
  Report Type: Report from Study
  Country: US (occurrence: US)
  Receive Date: 20250703
  Receipt Date: 20250703
  Transmission Date: 20251021
  Serious: Yes (Other)
  Sender: ROCHE
  Company Number: US-ROCHE-10000323008

PATIENT

DRUGS (9)
  1. ATEZOLIZUMAB [Suspect]
     Active Substance: ATEZOLIZUMAB
     Indication: Neoplasm malignant
     Route: 065
  2. NELVUTAMIG [Suspect]
     Active Substance: NELVUTAMIG
     Indication: Neoplasm malignant
     Route: 065
  3. TREMELIMUMAB [Suspect]
     Active Substance: TREMELIMUMAB
     Indication: Neoplasm malignant
     Route: 065
  4. NIVOLUMAB [Suspect]
     Active Substance: NIVOLUMAB
     Indication: Neoplasm malignant
     Route: 065
  5. PEMBROLIZUMAB [Suspect]
     Active Substance: PEMBROLIZUMAB
     Indication: Neoplasm malignant
     Route: 065
  6. AVELUMAB [Suspect]
     Active Substance: AVELUMAB
     Indication: Neoplasm malignant
     Route: 065
  7. DURVALUMAB [Suspect]
     Active Substance: DURVALUMAB
     Indication: Neoplasm malignant
     Route: 065
  8. CEMIPLIMAB [Suspect]
     Active Substance: CEMIPLIMAB
     Indication: Neoplasm malignant
     Route: 065
  9. DOSTARLIMAB [Suspect]
     Active Substance: DOSTARLIMAB
     Indication: Neoplasm malignant
     Route: 065

REACTIONS (23)
  - Encephalitis [Unknown]
  - Skin toxicity [Unknown]
  - Colitis [Unknown]
  - Hepatitis [Unknown]
  - Pneumonitis [Unknown]
  - Diabetes mellitus [Unknown]
  - Arthritis [Unknown]
  - Myositis [Unknown]
  - Nephritis [Unknown]
  - Myasthenia gravis [Unknown]
  - Guillain-Barre syndrome [Unknown]
  - Meningitis [Unknown]
  - Myelitis [Unknown]
  - Neuropathy peripheral [Unknown]
  - Immune thrombocytopenia [Unknown]
  - Autoimmune haemolytic anaemia [Unknown]
  - Thrombotic thrombocytopenic purpura [Unknown]
  - Haemolytic uraemic syndrome [Unknown]
  - Haemophilia [Unknown]
  - Myocarditis [Unknown]
  - Pericarditis [Unknown]
  - Arrhythmia [Unknown]
  - Infusion related reaction [Unknown]
